FAERS Safety Report 6102647-3 (Version None)
Quarter: 2009Q1

REPORT INFORMATION
  Report Type: 
  Country: None (occurrence: None)
  Receive Date: 20090304
  Receipt Date: 20081107
  Transmission Date: 20090719
  Serious: No
  Sender: FDA-Public Use
  Company Number: A0755417A

PATIENT
  Age: 67 Year
  Sex: Female

DRUGS (4)
  1. REQUIP XL [Suspect]
     Indication: PARKINSON'S DISEASE
     Dosage: 4MG PER DAY
     Route: 048
     Dates: start: 20080925
  2. ARTANE [Concomitant]
  3. COMTAN [Concomitant]
  4. SINEMET CR [Concomitant]

REACTIONS (1)
  - DRUG INEFFECTIVE [None]
